FAERS Safety Report 7026663-2 (Version None)
Quarter: 2010Q4

REPORT INFORMATION
  Report Type: 
  Country: None (occurrence: None)
  Receive Date: 20101004
  Receipt Date: 20100921
  Transmission Date: 20110411
  Serious: Yes (Other)
  Sender: FDA-Public Use
  Company Number: US-ELI_LILLY_AND_COMPANY-US201009006043

PATIENT
  Sex: Female

DRUGS (2)
  1. FORTEO [Suspect]
  2. NEXIUM [Concomitant]

REACTIONS (3)
  - GASTRIC CANCER [None]
  - GASTROINTESTINAL DISORDER [None]
  - INJECTION SITE HAEMATOMA [None]
